FAERS Safety Report 7905845-9 (Version None)
Quarter: 2011Q4

REPORT INFORMATION
  Report Type: 
  Country: None (occurrence: None)
  Receive Date: 20111110
  Receipt Date: 20111102
  Transmission Date: 20120403
  Serious: Yes (Other)
  Sender: FDA-Public Use
  Company Number: IE-US-EMD SERONO, INC.-7093562

PATIENT
  Sex: Female

DRUGS (2)
  1. ZOLPIDEM TARTRATE [Concomitant]
     Indication: SLEEP DISORDER
  2. REBIF [Suspect]
     Indication: RELAPSING-REMITTING MULTIPLE SCLEROSIS
     Dates: start: 20051030

REACTIONS (2)
  - SINUSITIS [None]
  - RESPIRATORY TRACT INFECTION [None]
